FAERS Safety Report 10618787 (Version 1)
Quarter: 2014Q4

REPORT INFORMATION
  Report Type: Report from Study
  Country: US (occurrence: None)
  Receive Date: 20141125
  Receipt Date: 20141125
  Transmission Date: 20150529
  Serious: Yes (Hospitalization, Other)
  Sender: FDA-Public Use
  Company Number: AEGR000903

PATIENT
  Age: 58 Year
  Sex: Male
  Weight: 101.6 kg

DRUGS (7)
  1. PLAVIX (CLOPIDOGREL BISULFATE) [Concomitant]
  2. RANEXA (RANOLAZINE) [Concomitant]
  3. JUXTAPID [Suspect]
     Active Substance: LOMITAPIDE MESYLATE
     Indication: TYPE IIA HYPERLIPIDAEMIA
     Route: 048
     Dates: start: 20130823, end: 2014
  4. ASPIRIN. [Concomitant]
     Active Substance: ASPIRIN
  5. ALEVE (NAPROXEN SODIUM) [Concomitant]
  6. METOPROLOL (METOPROLOL TARTRATE) [Concomitant]
     Active Substance: METOPROLOL TARTRATE
  7. ZINC [Concomitant]
     Active Substance: ZINC\ZINC CHLORIDE

REACTIONS (3)
  - Myocardial infarction [None]
  - Procedural complication [None]
  - Ulcer haemorrhage [None]

NARRATIVE: CASE EVENT DATE: 20141017
